FAERS Safety Report 4466015-2 (Version None)
Quarter: 2004Q3

REPORT INFORMATION
  Report Type: 
  Country: None (occurrence: None)
  Receive Date: 20040930
  Receipt Date: 20040930
  Transmission Date: 20050211
  Serious: Yes (Life-Threatening, Hospitalization)
  Sender: FDA-Public Use
  Company Number: None

PATIENT
  Age: 50 Year
  Sex: Male
  Weight: 86.1834 kg

DRUGS (2)
  1. AVELOX [Suspect]
     Indication: PERITONITIS
     Dosage: INTRAVENOUS
     Route: 042
     Dates: start: 20030608, end: 20030615
  2. METHADONE HCL [Suspect]
     Indication: DRUG DEPENDENCE
     Dosage: 160 MG ORAL
     Route: 048
     Dates: start: 20010403, end: 20040929

REACTIONS (1)
  - RESPIRATORY DEPRESSION [None]
